FAERS Safety Report 10438032 (Version 2)
Quarter: 2016Q1

REPORT INFORMATION
  Report Type: Spontaneous
  Country: US (occurrence: US)
  Receive Date: 20140908
  Receipt Date: 20160106
  Transmission Date: 20160525
  Serious: No
  Sender: FDA-Public Use
  Company Number: US-BRISTOL-MYERS SQUIBB COMPANY-19836071

PATIENT
  Age: 37 Year
  Sex: Female

DRUGS (1)
  1. ABILIFY [Suspect]
     Active Substance: ARIPIPRAZOLE
     Indication: BIPOLAR II DISORDER
     Dosage: 5 MG, QD
     Route: 065

REACTIONS (3)
  - Maternal exposure during pregnancy [Recovered/Resolved]
  - Live birth [Unknown]
  - Off label use [Unknown]

NARRATIVE: CASE EVENT DATE: 201307
